FAERS Safety Report 13125999 (Version 1)
Quarter: 2017Q1

REPORT INFORMATION
  Report Type: Spontaneous
  Country: IT (occurrence: IT)
  Receive Date: 20170118
  Receipt Date: 20170118
  Transmission Date: 20170428
  Serious: Yes (Other)
  Sender: FDA-Public Use
  Company Number: IT-GLAXOSMITHKLINE-IT2017GSK004285

PATIENT
  Age: 3 Year
  Sex: Male

DRUGS (1)
  1. LAMOTRIGINE. [Suspect]
     Active Substance: LAMOTRIGINE

REACTIONS (18)
  - Hyperphagia [Unknown]
  - Bundle branch block right [Unknown]
  - Agitation [Unknown]
  - Dysmetria [Unknown]
  - Dystonia [Unknown]
  - Tonic clonic movements [Unknown]
  - Hyperhidrosis [Unknown]
  - Accidental overdose [Unknown]
  - Seizure [Unknown]
  - Restlessness [Unknown]
  - Sinus tachycardia [Unknown]
  - Status epilepticus [Unknown]
  - Protrusion tongue [Unknown]
  - Malaise [Unknown]
  - Oculogyric crisis [Unknown]
  - Ataxia [Unknown]
  - Toxicity to various agents [Unknown]
  - Loss of consciousness [Unknown]
